FAERS Safety Report 5787821-8 (Version None)
Quarter: 2008Q2

REPORT INFORMATION
  Report Type: 
  Country: None (occurrence: None)
  Receive Date: 20080625
  Receipt Date: 20080618
  Transmission Date: 20081010
  Serious: Yes (Other)
  Sender: FDA-Public Use
  Company Number: PHHY2008CA11756

PATIENT

DRUGS (1)
  1. DIOVAN T30230++HY [Suspect]
     Dosage: 80 MG DAILY

REACTIONS (2)
  - BLOOD PRESSURE INCREASED [None]
  - MICROALBUMINURIA [None]
